FAERS Safety Report 7773317-0 (Version None)
Quarter: 2011Q3

REPORT INFORMATION
  Report Type: 
  Country: None (occurrence: None)
  Receive Date: 20110922
  Receipt Date: 20110909
  Transmission Date: 20111222
  Serious: Yes (Hospitalization)
  Sender: FDA-Public Use
  Company Number: TR-MYLANLABS-2011S1019353

PATIENT
  Age: 53 Year
  Sex: Male

DRUGS (2)
  1. LEVOTHYROXINE SODIUM [Suspect]
     Dosage: 300 MG/DAY
     Route: 065
  2. LEVOTHYROXINE SODIUM [Suspect]
     Indication: AUTOIMMUNE THYROIDITIS
     Dosage: 100 MG/DAY
     Route: 065

REACTIONS (2)
  - ARTERIOSPASM CORONARY [None]
  - HYPERTHYROIDISM [None]
